FAERS Safety Report 6327150-7 (Version None)
Quarter: 2009Q3

REPORT INFORMATION
  Report Type: 
  Country: None (occurrence: None)
  Receive Date: 20090825
  Receipt Date: 20090825
  Transmission Date: 20100115
  Serious: Yes (Death, Hospitalization)
  Sender: FDA-Public Use
  Company Number: B0540972A

PATIENT
  Sex: Male

DRUGS (3)
  1. LANOXIN [Suspect]
     Indication: DRUG USE FOR UNKNOWN INDICATION
     Route: 042
     Dates: start: 20080829, end: 20080830
  2. HYDROMORPHONE HCL [Concomitant]
  3. FENTANYL [Concomitant]

REACTIONS (4)
  - BRONCHOPNEUMONIA [None]
  - DRUG ADMINISTRATION ERROR [None]
  - DRUG NAME CONFUSION [None]
  - MEDICATION ERROR [None]
